FAERS Safety Report 11504894 (Version 1)
Quarter: 2015Q3

REPORT INFORMATION
  Report Type: Report from Study
  Country: US (occurrence: US)
  Receive Date: 20150915
  Receipt Date: 20150915
  Transmission Date: 20151125
  Serious: Yes (Other)
  Sender: FDA-Public Use
  Company Number: US-AMGEN-USASL2015094274

PATIENT
  Age: 69 Year
  Sex: Male

DRUGS (1)
  1. ENBREL [Suspect]
     Active Substance: ETANERCEPT
     Indication: RHEUMATOID ARTHRITIS
     Dosage: UNK UNK, UNK
     Route: 065
     Dates: start: 2010, end: 20150624

REACTIONS (4)
  - Staphylococcal sepsis [Recovered/Resolved]
  - Accident [Unknown]
  - Spinal fusion surgery [Unknown]
  - Spinal cord infection [Recovered/Resolved]

NARRATIVE: CASE EVENT DATE: 201506
